FAERS Safety Report 25904065 (Version 1)
Quarter: 2025Q4

REPORT INFORMATION
  Report Type: Spontaneous
  Country: US (occurrence: US)
  Receive Date: 20251010
  Receipt Date: 20251010
  Transmission Date: 20260118
  Serious: No
  Sender: EMD SERONO INC
  Company Number: US-Merck Healthcare KGaA-2025050699

PATIENT
  Age: 36 Year
  Sex: Female

DRUGS (3)
  1. GONAL-F [Suspect]
     Active Substance: FOLLITROPIN
     Indication: Product used for unknown indication
  2. CETROTIDE [Suspect]
     Active Substance: CETRORELIX ACETATE
     Indication: Product used for unknown indication
  3. MENOPUR [Suspect]
     Active Substance: FOLLITROPIN\LUTEINIZING HORMONE
     Indication: Product used for unknown indication

REACTIONS (1)
  - Injection site bruising [Unknown]
